FAERS Safety Report 18989539 (Version 2)
Quarter: 2024Q4

REPORT INFORMATION
  Report Type: Spontaneous
  Country: US (occurrence: US)
  Receive Date: 20210310
  Receipt Date: 20241227
  Transmission Date: 20250115
  Serious: Yes (Hospitalization, Other)
  Sender: ALKEM
  Company Number: None

PATIENT
  Age: 64 Year
  Sex: Male

DRUGS (9)
  1. MYCOPHENOLATE MOFETIL [Suspect]
     Active Substance: MYCOPHENOLATE MOFETIL
     Indication: Immunosuppressant drug therapy
     Dosage: 250 MILLIGRAM, BID
     Route: 065
  2. TACROLIMUS [Interacting]
     Active Substance: TACROLIMUS
     Indication: Immunosuppressant drug therapy
     Dosage: 0.15 MILLIGRAM/KILOGRAM, QD (EXTENDED RELEASE)
     Route: 065
  3. TACROLIMUS [Interacting]
     Active Substance: TACROLIMUS
     Dosage: UNK (INTERMEDIATE RELEASE LOWER DOSE)
     Route: 065
  4. POSACONAZOLE [Interacting]
     Active Substance: POSACONAZOLE
     Indication: Coccidioidomycosis
     Dosage: 300 MILLIGRAM, QD,  DELAYED-RELEASE TABLETS
     Route: 065
  5. POSACONAZOLE [Interacting]
     Active Substance: POSACONAZOLE
     Indication: Fungal infection
  6. POSACONAZOLE [Interacting]
     Active Substance: POSACONAZOLE
     Indication: Phaeohyphomycosis
  7. PREDNISONE [Suspect]
     Active Substance: PREDNISONE
     Indication: Immunosuppressant drug therapy
     Dosage: 5 MILLIGRAM, QD
     Route: 065
  8. THYMOCYTE IMMUNE GLOBULIN NOS [Concomitant]
     Active Substance: THYMOCYTE IMMUNE GLOBULIN NOS
     Indication: Lymphodepletion
     Dosage: 4 MILLIGRAM/KILOGRAM
     Route: 065
  9. Sulfamethoxazole 400 mg,Trimethoprim 80 mg [Concomitant]
     Indication: Prophylaxis
     Dosage: 80-400 MG THRICE WEEKLY
     Route: 065

REACTIONS (4)
  - Coccidioidomycosis [Recovering/Resolving]
  - Fungal infection [Recovering/Resolving]
  - Phaeohyphomycosis [Recovering/Resolving]
  - Drug interaction [Unknown]
